FAERS Safety Report 9159374 (Version 1)
Quarter: 2013Q1

REPORT INFORMATION
  Report Type: Spontaneous
  Country: JP (occurrence: None)
  Receive Date: 20130212
  Receipt Date: 20130212
  Transmission Date: 20140127
  Serious: Yes (Hospitalization, Disabling)
  Sender: FDA-Public Use
  Company Number: TCI2011A02688

PATIENT
  Age: 64 Year
  Sex: Male

DRUGS (12)
  1. NESINA [Suspect]
     Indication: TYPE 2 DIABETES MELLITUS
     Route: 048
     Dates: start: 20110118, end: 20110402
  2. KINEDAK (EPALRESTAT) [Concomitant]
  3. GASMOTIN (MOSAPRIDE CITRATE) [Concomitant]
  4. STROGAIN (OXETACAINE) [Concomitant]
  5. NAUZELIN (DOMPERIDONE) [Concomitant]
  6. ARGAMATE (CALCIUM POLYSTYRENE SULFONATE) [Concomitant]
  7. CALTAN (CALCIUM CARBONATE) [Concomitant]
  8. ATARAX-P (HYDROZYZINE HYDROCHLORIDE) [Concomitant]
  9. LENDROMIN (BROTIZOLAM) [Concomitant]
  10. NITRODERM TTS (GLYCERYL TRINITRATE) [Concomitant]
  11. FESIN (SACCHARATED IRON OXIDE) [Concomitant]
  12. EPOGIN (EPOETIN BETA) [Concomitant]

REACTIONS (3)
  - Hemiparesis [None]
  - Dysarthria [None]
  - Diarrhoea [None]
